FAERS Safety Report 4637548-0 (Version None)
Quarter: 2005Q2

REPORT INFORMATION
  Report Type: 
  Country: None (occurrence: None)
  Receive Date: 20050325
  Receipt Date: 20050107
  Transmission Date: 20051028
  Serious: No
  Sender: FDA-Public Use
  Company Number: USA040260331

PATIENT
  Age: 81 Year
  Sex: Female

DRUGS (6)
  1. FORTEO [Suspect]
     Indication: OSTEOPOROSIS
     Dosage: 20 UG
     Dates: start: 20040205
  2. TARKA [Concomitant]
  3. DITROPAN [Concomitant]
  4. PLAVIX [Concomitant]
  5. ZOCOR [Concomitant]
  6. PREVACID [Concomitant]

REACTIONS (6)
  - CONSTIPATION [None]
  - FAECALOMA [None]
  - FEELING ABNORMAL [None]
  - NASOPHARYNGITIS [None]
  - PROCTALGIA [None]
  - SINUSITIS [None]
